FAERS Safety Report 6239087-2 (Version None)
Quarter: 2009Q2

REPORT INFORMATION
  Report Type: 
  Country: None (occurrence: None)
  Receive Date: 20090622
  Receipt Date: 20090618
  Transmission Date: 20091009
  Serious: Yes (Death, Other)
  Sender: FDA-Public Use
  Company Number: PHHY2009CN24337

PATIENT
  Age: 58 Year
  Sex: Female

DRUGS (3)
  1. CYCLOSPORINE [Suspect]
     Indication: SJOGREN'S SYNDROME
  2. PREDNISOLONE [Concomitant]
     Indication: IMMUNOSUPPRESSION
  3. RITUXIMAB [Concomitant]
     Indication: AUTOIMMUNE THROMBOCYTOPENIA
     Dosage: 375 MG/M2, QW

REACTIONS (5)
  - ASPERGILLOSIS [None]
  - HERPES ZOSTER [None]
  - INFECTION [None]
  - LUNG INFECTION [None]
  - STAPHYLOCOCCAL INFECTION [None]
